FAERS Safety Report 24611092 (Version 1)
Quarter: 2024Q4

REPORT INFORMATION
  Report Type: Other
  Country: GB (occurrence: GB)
  Receive Date: 20241113
  Receipt Date: 20241113
  Transmission Date: 20250115
  Serious: Yes (Other)
  Sender: GLENMARK
  Company Number: GB-MHRA-TPP33637447C1437732YC1730222920457

PATIENT

DRUGS (2)
  1. MONTELUKAST SODIUM [Suspect]
     Active Substance: MONTELUKAST SODIUM
     Indication: Ill-defined disorder
     Dosage: 5 MILLIGRAM QD (TAKE ONE AT NIGHT, SUGAR FREE)
     Route: 065
     Dates: start: 20240212, end: 20241029
  2. ALBUTEROL [Concomitant]
     Active Substance: ALBUTEROL
     Indication: Asthma
     Dosage: 2 DOSAGE FORM PRN, INHALE 2 DOSES AS NEEDED FOR ASTHMA - GOOD CONT.
     Dates: start: 20240212, end: 20241029

REACTIONS (1)
  - Depressed mood [Recovered/Resolved]
